FAERS Safety Report 15323505 (Version 2)
Quarter: 2022Q3

REPORT INFORMATION
  Report Type: Report from Study
  Country: DE (occurrence: DE)
  Receive Date: 20180827
  Receipt Date: 20220902
  Transmission Date: 20221027
  Serious: Yes (Hospitalization, Other)
  Sender: FDA-Public Use
  Company Number: PHHY2018DE078921

PATIENT
  Sex: Female

DRUGS (11)
  1. UNSPECIFIED INGREDIENT [Suspect]
     Active Substance: UNSPECIFIED INGREDIENT
     Indication: Product used for unknown indication
     Dosage: UNK
     Route: 065
  2. METHOTREXATE [Suspect]
     Active Substance: METHOTREXATE
     Indication: Rheumatoid arthritis
     Dosage: 10 MG
     Route: 065
     Dates: start: 20170823
  3. METHOTREXATE [Suspect]
     Active Substance: METHOTREXATE
     Dosage: 15 MG
     Route: 065
     Dates: start: 20171205
  4. METHOTREXATE [Suspect]
     Active Substance: METHOTREXATE
     Dosage: 15 MG
     Route: 065
     Dates: start: 20180216
  5. METHOTREXATE [Suspect]
     Active Substance: METHOTREXATE
     Dosage: 15 MG
     Route: 065
     Dates: start: 20180815
  6. METHOTREXATE [Suspect]
     Active Substance: METHOTREXATE
     Dosage: 15 MG
     Route: 065
     Dates: start: 20190222
  7. METHOTREXATE [Suspect]
     Active Substance: METHOTREXATE
     Dosage: 15 MG
     Route: 065
     Dates: start: 20190711
  8. METHOTREXATE [Suspect]
     Active Substance: METHOTREXATE
     Dosage: 15 MG
     Route: 065
     Dates: start: 20200219
  9. METHOTREXATE [Suspect]
     Active Substance: METHOTREXATE
     Dosage: 15 MG
     Route: 065
     Dates: start: 20200702
  10. ERELZI [Suspect]
     Active Substance: ETANERCEPT-SZZS
     Indication: Rheumatoid arthritis
     Dosage: 50 MG
     Route: 065
     Dates: start: 201710, end: 201712
  11. ETANERCEPT [Suspect]
     Active Substance: ETANERCEPT
     Indication: Rheumatoid arthritis
     Dosage: 50 MG
     Route: 065
     Dates: start: 20170823, end: 201710

REACTIONS (22)
  - Blood catecholamines decreased [Recovered/Resolved]
  - Lumbar spinal stenosis [Recovered/Resolved]
  - Intervertebral disc protrusion [Recovered/Resolved]
  - Macular fibrosis [Unknown]
  - Sinusitis [Unknown]
  - Sinobronchitis [Unknown]
  - Polyneuropathy [Unknown]
  - Nausea [Unknown]
  - Nasopharyngitis [Recovered/Resolved]
  - Pain in jaw [Not Recovered/Not Resolved]
  - Haematoma [Recovered/Resolved]
  - Breast scan [Not Recovered/Not Resolved]
  - Gastrooesophageal reflux disease [Unknown]
  - Synovial cyst [Not Recovered/Not Resolved]
  - Abdominal pain upper [Recovered/Resolved]
  - Hiatus hernia [Unknown]
  - Gastritis [Recovered/Resolved]
  - Oedema peripheral [Not Recovered/Not Resolved]
  - Chondromalacia [Unknown]
  - Rotator cuff syndrome [Not Recovered/Not Resolved]
  - Back pain [Unknown]
  - Fatigue [Unknown]

NARRATIVE: CASE EVENT DATE: 20171029
